FAERS Safety Report 5079345-0 (Version None)
Quarter: 2006Q3

REPORT INFORMATION
  Report Type: 
  Country: None (occurrence: None)
  Receive Date: 20060720
  Receipt Date: 20050712
  Transmission Date: 20061208
  Serious: Yes (Hospitalization, Other)
  Sender: FDA-Public Use
  Company Number: 2005102055

PATIENT
  Age: 61 Year
  Sex: Female
  Weight: 76.2043 kg

DRUGS (5)
  1. CELEBREX [Suspect]
     Indication: ARTHRALGIA
     Dosage: 400 MG (200 MG, 2 IN 1 D), ORAL
     Route: 048
  2. BEXTRA [Suspect]
     Indication: ARTHRALGIA
     Dosage: 1 IN 1 D, ORAL
     Route: 048
  3. ALEVE [Suspect]
     Indication: ARTHRALGIA
     Dates: start: 20050101, end: 20050101
  4. PROCARDIA [Concomitant]
  5. SYNTRHOID (LEVOTHYROXINE SODIUM) [Concomitant]

REACTIONS (3)
  - CORONARY ARTERY STENOSIS [None]
  - MYOCARDIAL INFARCTION [None]
  - PAIN [None]
